FAERS Safety Report 21030647 (Version 1)
Quarter: 2022Q3

REPORT INFORMATION
  Report Type: Spontaneous
  Country: US (occurrence: None)
  Receive Date: 20220701
  Receipt Date: 20220701
  Transmission Date: 20221026
  Serious: No
  Sender: FDA-Public Use
  Company Number: US-ROCHE-2999083

PATIENT
  Age: 64 Year
  Sex: Female
  Weight: 72.640 kg

DRUGS (18)
  1. ACTEMRA [Suspect]
     Active Substance: TOCILIZUMAB
     Indication: Rheumatoid arthritis
     Route: 058
     Dates: start: 20210627
  2. ACTEMRA [Suspect]
     Active Substance: TOCILIZUMAB
  3. ACTEMRA [Suspect]
     Active Substance: TOCILIZUMAB
     Route: 058
     Dates: start: 20211001
  4. ACTEMRA [Suspect]
     Active Substance: TOCILIZUMAB
  5. ACTEMRA [Suspect]
     Active Substance: TOCILIZUMAB
     Route: 058
  6. ACTEMRA [Suspect]
     Active Substance: TOCILIZUMAB
  7. CLONAZEPAM [Suspect]
     Active Substance: CLONAZEPAM
     Indication: Anxiety
     Route: 048
  8. CLONAZEPAM [Suspect]
     Active Substance: CLONAZEPAM
     Indication: Post-traumatic stress disorder
  9. ACTEMRA [Suspect]
     Active Substance: TOCILIZUMAB
     Indication: Product used for unknown indication
     Dosage: STRENGTH:162 MG/0.9 ML
     Route: 058
     Dates: start: 202110, end: 20211227
  10. ACTEMRA [Suspect]
     Active Substance: TOCILIZUMAB
  11. GABAPENTIN [Concomitant]
     Active Substance: GABAPENTIN
     Indication: Pain
     Dosage: (1/2) 800 MG TABLET TWICE DAILY CAN HAVE THREE DAILY
     Route: 048
  12. SERTRALINE [Concomitant]
     Active Substance: SERTRALINE HYDROCHLORIDE
     Indication: Depression
     Dosage: ONCE AT NIGHT
     Route: 048
  13. CLOBETASOL [Concomitant]
     Active Substance: CLOBETASOL
     Indication: Eczema
     Dosage: AS NEEDED FOR ECZEMA FLAREUPS
     Route: 061
     Dates: start: 2015
  14. CALTRATE +D3 [Concomitant]
     Indication: Bone density decreased
     Route: 048
  15. MINERALS\VITAMINS [Concomitant]
     Active Substance: MINERALS\VITAMINS
     Indication: Glaucoma
     Dosage: YES
     Route: 048
  16. MONISTAT 7 [Concomitant]
     Active Substance: MICONAZOLE NITRATE
  17. FLUCONAZOLE [Concomitant]
     Active Substance: FLUCONAZOLE
     Dosage: 2 TABLETS
     Dates: start: 20220103
  18. NYSTATIN [Concomitant]
     Active Substance: NYSTATIN
     Dates: start: 20220103

REACTIONS (11)
  - Fungal infection [Not Recovered/Not Resolved]
  - Product dose omission issue [Unknown]
  - Intentional product misuse [Unknown]
  - Bone density decreased [Not Recovered/Not Resolved]
  - Sleep apnoea syndrome [Not Recovered/Not Resolved]
  - Eczema [Not Recovered/Not Resolved]
  - Contusion [Recovered/Resolved]
  - Off label use [Unknown]
  - Vaginal ulceration [Unknown]
  - Vulvovaginal pain [Unknown]
  - Bacterial vaginosis [Not Recovered/Not Resolved]

NARRATIVE: CASE EVENT DATE: 20211130
